FAERS Safety Report 8884870 (Version 2)
Quarter: 2013Q1

REPORT INFORMATION
  Report Type: Spontaneous
  Country: US (occurrence: US)
  Receive Date: 20121105
  Receipt Date: 20130121
  Transmission Date: 20140127
  Serious: No
  Sender: FDA-Public Use
  Company Number: US-009507513-1210USA009241

PATIENT
  Age: 47 None
  Sex: Male

DRUGS (3)
  1. PEGINTRON [Suspect]
     Dosage: 0.5 ML, WEEKLY
     Route: 058
     Dates: start: 201205
  2. PEGINTRON [Suspect]
     Dosage: 0.4 ML, WEEKLY
     Route: 058
     Dates: start: 2012
  3. RIBASPHERE [Suspect]

REACTIONS (6)
  - Anaemia [Not Recovered/Not Resolved]
  - Fatigue [Not Recovered/Not Resolved]
  - Injection site rash [Not Recovered/Not Resolved]
  - Contusion [Not Recovered/Not Resolved]
  - Product quality issue [Unknown]
  - Drug dose omission [Unknown]
